FAERS Safety Report 15456813 (Version 1)
Quarter: 2018Q4

REPORT INFORMATION
  Report Type: Spontaneous
  Country: MX (occurrence: MX)
  Receive Date: 20181002
  Receipt Date: 20181002
  Transmission Date: 20190204
  Serious: Yes (Other)
  Sender: FDA-Public Use
  Company Number: MX-009507513-1810MEX000321

PATIENT
  Sex: Male

DRUGS (1)
  1. SITAGLIPTIN PHOSPHATE [Suspect]
     Active Substance: SITAGLIPTIN PHOSPHATE
     Dosage: UNK
     Route: 048
     Dates: start: 2018

REACTIONS (3)
  - Glycosylated haemoglobin abnormal [Unknown]
  - Renal injury [Unknown]
  - Headache [Unknown]

NARRATIVE: CASE EVENT DATE: 2018
